FAERS Safety Report 8591526-8 (Version None)
Quarter: 2012Q3

REPORT INFORMATION
  Report Type: 
  Country: None (occurrence: None)
  Receive Date: 20120730
  Receipt Date: 20120713
  Transmission Date: 20120928
  Serious: Yes (Other)
  Sender: FDA-Public Use
  Company Number: 2012032869

PATIENT
  Age: 20 Year
  Sex: Male

DRUGS (2)
  1. HIZENTRA [Suspect]
  2. HIZENTRA [Suspect]
     Indication: IMMUNODEFICIENCY
     Dosage: 8 G 1X/WEEK, 16 VIALS OF 4G, 8 VIALS OF 4G, SUBCUTANEOUS
     Route: 058
     Dates: start: 20120425, end: 20120627

REACTIONS (3)
  - INFUSION SITE PAIN [None]
  - APPLICATION SITE REACTION [None]
  - SCAB [None]
